FAERS Safety Report 6581338-9 (Version None)
Quarter: 2010Q1

REPORT INFORMATION
  Report Type: 
  Country: None (occurrence: None)
  Receive Date: 20100215
  Receipt Date: 20100209
  Transmission Date: 20100710
  Serious: Yes (Hospitalization, Other)
  Sender: FDA-Public Use
  Company Number: BE-BAYER-201014979GPV

PATIENT
  Age: 79 Year
  Sex: Female
  Weight: 82 kg

DRUGS (3)
  1. NEXAVAR [Suspect]
     Indication: RENAL CELL CARCINOMA
  2. MEDROL [Concomitant]
     Dates: start: 20100204
  3. ZYRTEC [Concomitant]
     Dates: start: 20100204

REACTIONS (2)
  - ATRIAL FIBRILLATION [None]
  - HAEMOPTYSIS [None]
